FAERS Safety Report 21057334 (Version 1)
Quarter: 2022Q3

REPORT INFORMATION
  Report Type: Report from Study
  Country: BR (occurrence: BR)
  Receive Date: 20220708
  Receipt Date: 20220708
  Transmission Date: 20221027
  Serious: Yes (Hospitalization, Other)
  Sender: FDA-Public Use
  Company Number: BR-JNJFOC-20180203278

PATIENT
  Age: 5 Decade
  Sex: Female
  Weight: 64 kg

DRUGS (7)
  1. SIMPONI [Suspect]
     Active Substance: GOLIMUMAB
     Indication: Rheumatoid arthritis
     Route: 058
     Dates: start: 20160521
  2. SIMPONI [Suspect]
     Active Substance: GOLIMUMAB
  3. METHOTREXATE [Concomitant]
     Active Substance: METHOTREXATE
     Route: 065
  4. FOLIC ACID [Concomitant]
     Active Substance: FOLIC ACID
     Route: 065
  5. VENZER [Concomitant]
  6. ATENOLOL [Concomitant]
     Active Substance: ATENOLOL
  7. VITAMINS NOS [Concomitant]
     Active Substance: VITAMINS

REACTIONS (11)
  - Sjogren^s syndrome [Unknown]
  - Myocardial bridging [Unknown]
  - Overweight [Unknown]
  - Skin disorder [Unknown]
  - Discomfort [Unknown]
  - Rhinitis [Unknown]
  - Pain [Unknown]
  - Anxiety [Unknown]
  - Therapeutic response decreased [Unknown]
  - Injection site discolouration [Unknown]
  - Injection site pain [Unknown]
